FAERS Safety Report 19004267 (Version 2)
Quarter: 2021Q1

REPORT INFORMATION
  Report Type: Spontaneous
  Country: CH (occurrence: CH)
  Receive Date: 20210312
  Receipt Date: 20210324
  Transmission Date: 20210420
  Serious: Yes (Other)
  Sender: FDA-Public Use
  Company Number: CH-PURDUE-USA-2021-0232504

PATIENT
  Age: 3 Month
  Sex: Male
  Weight: 5.5 kg

DRUGS (16)
  1. FENTANYL SINTETICA [Suspect]
     Active Substance: FENTANYL CITRATE
     Dosage: 35 MCG, SINGLE [7 X 3.5MCG]
     Route: 065
     Dates: start: 20210106, end: 20210106
  2. CATAPRESSAN                        /00171101/ [Suspect]
     Active Substance: CLONIDINE
     Indication: PRODUCT USED FOR UNKNOWN INDICATION
  3. NAROPIN [Concomitant]
     Active Substance: ROPIVACAINE HYDROCHLORIDE
     Dosage: UNK
     Dates: start: 20210106, end: 20210106
  4. AUGMENTIN [Concomitant]
     Active Substance: AMOXICILLIN\CLAVULANATE POTASSIUM
     Dosage: 300 MG, BID
     Dates: start: 20210106, end: 20210106
  5. NARCAN [Concomitant]
     Active Substance: NALOXONE HYDROCHLORIDE
     Dosage: 2 MCG, TID
     Dates: start: 20210106, end: 20210106
  6. FENTANYL SINTETICA [Suspect]
     Active Substance: FENTANYL CITRATE
     Indication: ANAESTHESIA
  7. CATAPRESSAN                        /00171101/ [Suspect]
     Active Substance: CLONIDINE
     Indication: ANAESTHESIA
  8. TRACRIUM [Concomitant]
     Active Substance: ATRACURIUM BESYLATE
     Dosage: 2.5 MG, UNK
     Dates: start: 20210106, end: 20210106
  9. ROBINUL [Concomitant]
     Active Substance: GLYCOPYRROLATE
     Dosage: 60 MCG, UNK
     Dates: start: 20210106, end: 20210106
  10. MEPHAMESONE [Concomitant]
     Active Substance: DEXAMETHASONE
     Dosage: 2 MG, SINGLE
     Dates: start: 20210106, end: 20210106
  11. PALLADONE [Suspect]
     Active Substance: HYDROMORPHONE HYDROCHLORIDE
     Indication: PRODUCT USED FOR UNKNOWN INDICATION
     Dosage: UNK [IN TOTAL]
     Route: 065
     Dates: start: 20210106, end: 20210106
  12. FENTANYL SINTETICA [Suspect]
     Active Substance: FENTANYL CITRATE
     Indication: PRODUCT USED FOR UNKNOWN INDICATION
  13. CATAPRESSAN                        /00171101/ [Suspect]
     Active Substance: CLONIDINE
     Dosage: 6 MCG, SINGLE
     Route: 065
     Dates: start: 20210106, end: 20210106
  14. NAROPIN [Concomitant]
     Active Substance: ROPIVACAINE HYDROCHLORIDE
     Dosage: UNK
     Dates: start: 20200106
  15. CYKLOKAPRON [Concomitant]
     Active Substance: TRANEXAMIC ACID
     Dosage: 100 MG, SINGLE
     Dates: start: 20210106, end: 20210106
  16. PALLADON [Suspect]
     Active Substance: HYDROMORPHONE
     Indication: ANAESTHESIA
     Dosage: 18 MCG [15 MCG/KG, EVERY 3 TO 6 HOURS]
     Route: 065
     Dates: start: 20210106, end: 20210106

REACTIONS (3)
  - Sedation complication [Recovered/Resolved]
  - Respiratory depression [Recovered/Resolved]
  - Acidosis [Recovered/Resolved]

NARRATIVE: CASE EVENT DATE: 20210106
